FAERS Safety Report 9253296 (Version 1)
Quarter: 2013Q2

REPORT INFORMATION
  Report Type: Spontaneous
  Country: US (occurrence: US)
  Receive Date: 20130424
  Receipt Date: 20130424
  Transmission Date: 20140414
  Serious: No
  Sender: FDA-Public Use
  Company Number: US-009507513-1304USA007622

PATIENT
  Age: 39 Year
  Sex: Female

DRUGS (1)
  1. STROMECTOL [Suspect]
     Indication: INFESTATION
     Dosage: UNK DF, 4 AND 1/2  TABLETS
     Route: 048
     Dates: start: 20130405

REACTIONS (3)
  - Irritability [Recovering/Resolving]
  - Pruritus [Recovering/Resolving]
  - Infection parasitic [Recovering/Resolving]
